FAERS Safety Report 8199046-X (Version None)
Quarter: 2012Q1

REPORT INFORMATION
  Report Type: 
  Country: None (occurrence: None)
  Receive Date: 20120309
  Receipt Date: 20120305
  Transmission Date: 20120608
  Serious: Yes (Hospitalization)
  Sender: FDA-Public Use
  Company Number: NL-GLAXOSMITHKLINE-B0656405B

PATIENT
  Sex: Female
  Weight: 66 kg

DRUGS (7)
  1. PACLITAXEL [Suspect]
     Indication: BREAST CANCER METASTATIC
     Dosage: 80MGM2 WEEKLY
     Route: 042
     Dates: start: 20100414
  2. OMEPRAZOLE [Concomitant]
     Indication: GASTRIC DISORDER
     Dosage: 40MG PER DAY
     Route: 048
     Dates: start: 20100122
  3. PAROXETINE [Concomitant]
     Indication: SLEEP DISORDER
     Dosage: 20MG PER DAY
     Route: 048
     Dates: start: 19980101
  4. LOPERAMIDE HCL [Concomitant]
     Indication: DIARRHOEA
     Dosage: 2MG AS REQUIRED
     Route: 048
     Dates: start: 20100503, end: 20101106
  5. PREGABALIN [Concomitant]
     Indication: PAIN IN EXTREMITY
     Route: 048
     Dates: start: 20100811
  6. TRASTUZUMAB [Suspect]
     Indication: BREAST CANCER METASTATIC
     Route: 042
     Dates: start: 20100414
  7. LAPATINIB [Suspect]
     Indication: BREAST CANCER METASTATIC
     Route: 048
     Dates: start: 20100414

REACTIONS (4)
  - CHILLS [None]
  - FEELING COLD [None]
  - PYREXIA [None]
  - DYSPNOEA [None]
